FAERS Safety Report 6578824-4 (Version None)
Quarter: 2010Q1

REPORT INFORMATION
  Report Type: 
  Country: None (occurrence: None)
  Receive Date: 20100202
  Receipt Date: 20100118
  Transmission Date: 20100710
  Serious: Yes (Death)
  Sender: FDA-Public Use
  Company Number: 2010S1000092

PATIENT
  Age: 53 Year
  Sex: Female

DRUGS (8)
  1. OXYBUTYNIN CHLORIDE EXTENDED-RELEASE TABLETS USP  5MG, 10MG, AND 15MG [Suspect]
     Dosage: ; PO
     Route: 048
     Dates: end: 20080101
  2. LITHIUM [Suspect]
     Dosage: ; PO
     Route: 048
     Dates: end: 20080101
  3. ALBUTEROL [Suspect]
     Dosage: ; PO
     Route: 048
     Dates: end: 20080101
  4. ANGIOTENSIN-CONVERTING ENZYME INHIBITOR [Suspect]
     Dosage: ; PO
     Route: 048
     Dates: end: 20080101
  5. CLEMASTINE FUMARATE [Suspect]
     Dosage: ;; PO
     Route: 048
     Dates: end: 20080101
  6. ACETAMINOPHEN [Suspect]
     Dosage: ; PO
     Route: 048
     Dates: end: 20080101
  7. TOPICAL STEROIDS [Suspect]
     Dosage: ; PO
     Route: 048
     Dates: end: 20080101
  8. VALPROIC ACID [Suspect]
     Dosage: ; PO
     Route: 048
     Dates: end: 20080101

REACTIONS (1)
  - UNEVALUABLE EVENT [None]
